FAERS Safety Report 20833156 (Version 1)
Quarter: 2022Q2

REPORT INFORMATION
  Report Type: Spontaneous
  Country: IT (occurrence: IT)
  Receive Date: 20220516
  Receipt Date: 20220516
  Transmission Date: 20220721
  Serious: Yes (Death, Hospitalization)
  Sender: FDA-Public Use
  Company Number: IT-SHIONOGI, INC-2022000424

PATIENT
  Age: 73 Year
  Sex: Male

DRUGS (2)
  1. LUSUTROMBOPAG [Suspect]
     Active Substance: LUSUTROMBOPAG
     Indication: Thrombocytopenia
     Dosage: UNK
     Route: 065
     Dates: start: 20211006
  2. ENTECAVIR [Concomitant]
     Active Substance: ENTECAVIR
     Indication: Chronic hepatitis B
     Dosage: 0.5 MG, QD
     Route: 065
     Dates: start: 2015

REACTIONS (4)
  - Acute hepatic failure [Fatal]
  - Hepatic ischaemia [Fatal]
  - Splenic artery aneurysm [Fatal]
  - Shock haemorrhagic [Fatal]

NARRATIVE: CASE EVENT DATE: 20211026
